FAERS Safety Report 9134600 (Version 3)
Quarter: 2013Q2

REPORT INFORMATION
  Report Type: Spontaneous
  Country: BR (occurrence: BR)
  Receive Date: 20130304
  Receipt Date: 20130405
  Transmission Date: 20140414
  Serious: Yes (Death, Other)
  Sender: FDA-Public Use
  Company Number: PHHY2013BR020576

PATIENT
  Sex: Male
  Weight: 68 kg

DRUGS (4)
  1. EXELON [Suspect]
     Indication: DEMENTIA ALZHEIMER^S TYPE
     Route: 048
  2. FLUIMICIL [Concomitant]
     Indication: BRONCHIAL SECRETION RETENTION
     Dosage: 1 DF, BID
     Route: 048
  3. MOTILIUM//DOMPERIDONE [Concomitant]
     Indication: DYSPEPSIA
     Dosage: 2 DF, DAILY
     Route: 048
  4. MINERAL OIL EMULSION [Concomitant]
     Indication: GASTROINTESTINAL DISORDER
     Dosage: 1 DF, QD

REACTIONS (6)
  - Respiratory failure [Fatal]
  - Skin irritation [Recovered/Resolved]
  - Aphasia [Not Recovered/Not Resolved]
  - Impaired reasoning [Not Recovered/Not Resolved]
  - Gait disturbance [Not Recovered/Not Resolved]
  - Drug ineffective [Unknown]
